FAERS Safety Report 8961719 (Version 1)
Quarter: 2012Q4

REPORT INFORMATION
  Report Type: 
  Country: GB (occurrence: GB)
  Receive Date: 20121213
  Receipt Date: 20121213
  Transmission Date: 20130627
  Serious: Yes (Death, Hospitalization)
  Sender: FDA-Public Use
  Company Number: GB-PFIZER INC-2012309786

PATIENT
  Age: 55 Year
  Sex: Male

DRUGS (3)
  1. SIMVASTATIN [Suspect]
     Indication: CHOLESTEROL
     Dosage: 40 mg, UNK
     Dates: end: 200804
  2. ATORVASTATIN CALCIUM [Suspect]
     Indication: CHOLESTEROL
     Dosage: 40 mg, UNK
     Dates: end: 200804
  3. EZETIMIBE [Suspect]
     Indication: CHOLESTEROL
     Dosage: 10 mg, UNK

REACTIONS (2)
  - Neuromyopathy [Fatal]
  - Myopathy [Not Recovered/Not Resolved]
